FAERS Safety Report 22266783 (Version 1)
Quarter: 2023Q2

REPORT INFORMATION
  Report Type: Spontaneous
  Country: US (occurrence: US)
  Receive Date: 20230428
  Receipt Date: 20230428
  Transmission Date: 20230722
  Serious: Yes (Other)
  Sender: FDA-Public Use
  Company Number: US-TEVA-2023-US-2882014

PATIENT
  Age: 30 Year
  Sex: Female

DRUGS (7)
  1. CIPROFLOXACIN [Suspect]
     Active Substance: CIPROFLOXACIN
     Indication: Metastatic cutaneous Crohn^s disease
     Route: 048
  2. METRONIDAZOLE [Suspect]
     Active Substance: METRONIDAZOLE
     Indication: Metastatic cutaneous Crohn^s disease
     Route: 048
  3. INFLIXIMAB [Suspect]
     Active Substance: INFLIXIMAB
     Indication: Metastatic cutaneous Crohn^s disease
     Route: 065
  4. RIFABUTIN [Suspect]
     Active Substance: RIFABUTIN
     Indication: Metastatic cutaneous Crohn^s disease
     Route: 065
  5. RIFAXIMIN [Suspect]
     Active Substance: RIFAXIMIN
     Indication: Metastatic cutaneous Crohn^s disease
     Route: 065
  6. SILVER SULFADIAZINE [Suspect]
     Active Substance: SILVER SULFADIAZINE
     Indication: Metastatic cutaneous Crohn^s disease
     Route: 065
  7. ADALIMUMAB [Suspect]
     Active Substance: ADALIMUMAB
     Indication: Metastatic cutaneous Crohn^s disease
     Route: 065

REACTIONS (2)
  - Lupus-like syndrome [Unknown]
  - Drug ineffective [Unknown]
